FAERS Safety Report 19189791 (Version 2)
Quarter: 2021Q2

REPORT INFORMATION
  Report Type: Spontaneous
  Country: CA (occurrence: CA)
  Receive Date: 20210428
  Receipt Date: 20210623
  Transmission Date: 20210717
  Serious: Yes (Other)
  Sender: FDA-Public Use
  Company Number: NVSC2021CA090756

PATIENT
  Age: 80 Year
  Sex: Female
  Weight: 81.63 kg

DRUGS (2)
  1. SANDOZ TELMISARTAN [Suspect]
     Active Substance: TELMISARTAN
     Indication: HYPERTENSION
     Dosage: 80 MG, QD
     Route: 048
  2. NORVASC [Concomitant]
     Active Substance: AMLODIPINE BESYLATE
     Indication: PRODUCT USED FOR UNKNOWN INDICATION
     Dosage: UNK
     Route: 065

REACTIONS (3)
  - Chest discomfort [Recovered/Resolved]
  - Palpitations [Recovered/Resolved]
  - Product substitution issue [Recovered/Resolved]
